FAERS Safety Report 11218765 (Version 2)
Quarter: 2015Q3

REPORT INFORMATION
  Report Type: Spontaneous
  Country: JP (occurrence: JP)
  Receive Date: 20150625
  Receipt Date: 20150702
  Transmission Date: 20151125
  Serious: Yes (Hospitalization)
  Sender: FDA-Public Use
  Company Number: JP-PFIZER INC-2015205590

PATIENT
  Age: 59 Year
  Sex: Female

DRUGS (6)
  1. LYRICA [Suspect]
     Active Substance: PREGABALIN
     Indication: CERVICAL RADICULOPATHY
     Dosage: 25 MG, 1X/DAY(BEFORE BEDTIME)
     Route: 048
     Dates: start: 20150325, end: 20150506
  2. MUCOSTA [Concomitant]
     Active Substance: REBAMIPIDE
     Dosage: 100 MG, DAILY
     Route: 048
     Dates: start: 20150325, end: 20150506
  3. RINLAXER [Suspect]
     Active Substance: CHLORPHENESIN CARBAMATE
     Indication: CERVICAL RADICULOPATHY
     Dosage: 250 MG, DAILY
     Route: 048
     Dates: start: 20150325, end: 201505
  4. LYRICA [Suspect]
     Active Substance: PREGABALIN
     Dosage: 75 MG, DAILY
     Route: 048
     Dates: start: 20150507, end: 201505
  5. TAKEPRON [Concomitant]
     Active Substance: LANSOPRAZOLE
     Dosage: 15 MG, DAILY
     Route: 048
     Dates: start: 20150507, end: 201505
  6. MOBIC [Concomitant]
     Active Substance: MELOXICAM
     Indication: CERVICAL RADICULOPATHY
     Dosage: 10 MG, DAILY
     Route: 048
     Dates: start: 20150325, end: 201505

REACTIONS (1)
  - Drug-induced liver injury [Recovered/Resolved]

NARRATIVE: CASE EVENT DATE: 2015
